FAERS Safety Report 14599974 (Version 2)
Quarter: 2018Q1

REPORT INFORMATION
  Report Type: Spontaneous
  Country: BE (occurrence: BE)
  Receive Date: 20180305
  Receipt Date: 20180322
  Transmission Date: 20180509
  Serious: Yes (Life-Threatening, Hospitalization)
  Sender: FDA-Public Use
  Company Number: BE-TEVA-2018-BE-863977

PATIENT
  Age: 17 Year
  Sex: Female

DRUGS (6)
  1. RITUXIMAB. [Suspect]
     Active Substance: RITUXIMAB
     Indication: EPSTEIN-BARR VIRUS INFECTION
     Dosage: FOR WEEK 1 TO 5
     Route: 065
  2. DEXAMETHASONE. [Suspect]
     Active Substance: DEXAMETHASONE
     Dosage: 5 MG/M2 FOR TWO WEEKS
     Route: 065
  3. ETOPOSIDE. [Suspect]
     Active Substance: ETOPOSIDE
     Indication: EPSTEIN-BARR VIRUS INFECTION
     Dosage: 150 MG/M2 AT WEEK 1, 2, 5 AND 6
     Route: 065
  4. ETOPOSIDE. [Suspect]
     Active Substance: ETOPOSIDE
     Dosage: 75 MG/M2 AT WEEK 1, 7 AND 8
     Route: 065
  5. DEXAMETHASONE. [Suspect]
     Active Substance: DEXAMETHASONE
     Indication: EPSTEIN-BARR VIRUS INFECTION
     Dosage: 10 MG/M2 FOR TWO WEEKS; DOSE WAS HALVED EVERY TWO WEEKS
     Route: 065
  6. IMMUNOGLOBULIN IV [Concomitant]
     Active Substance: HUMAN IMMUNOGLOBULIN G
     Indication: EPSTEIN-BARR VIRUS INFECTION
     Route: 042

REACTIONS (5)
  - Aspergillus infection [Unknown]
  - Bronchopulmonary aspergillosis [Unknown]
  - Disease recurrence [Recovered/Resolved]
  - Neutropenia [Unknown]
  - Histiocytosis haematophagic [Recovered/Resolved]
